FAERS Safety Report 9118799 (Version 1)
Quarter: 2013Q1

REPORT INFORMATION
  Report Type: Spontaneous
  Country: US (occurrence: None)
  Receive Date: 20130221
  Receipt Date: 20130221
  Transmission Date: 20140127
  Serious: No
  Sender: FDA-Public Use
  Company Number: None

PATIENT
  Age: 82 Year
  Sex: Female

DRUGS (1)
  1. PROLIA 60MG PFS PROLIA AMGEN [Suspect]
     Indication: OSTEOPOROSIS
     Route: 058
     Dates: start: 20120802

REACTIONS (1)
  - Dizziness [None]
